FAERS Safety Report 4889929-8 (Version None)
Quarter: 2006Q1

REPORT INFORMATION
  Report Type: 
  Country: None (occurrence: None)
  Receive Date: 20060123
  Receipt Date: 20060123
  Transmission Date: 20060701
  Serious: Yes (Other)
  Sender: FDA-Public Use
  Company Number: None

PATIENT
  Sex: Female
  Weight: 76.2043 kg

DRUGS (1)
  1. MESTINON [Suspect]
     Indication: MYASTHENIA GRAVIS
     Dosage: 30 MG EVERY 2 HOURS PO
     Route: 048
     Dates: start: 20060114, end: 20060122

REACTIONS (25)
  - AGITATION [None]
  - ANGER [None]
  - ASTHENIA [None]
  - CHOKING [None]
  - CONDITION AGGRAVATED [None]
  - COORDINATION ABNORMAL [None]
  - DYSARTHRIA [None]
  - FATIGUE [None]
  - FEELING ABNORMAL [None]
  - HEADACHE [None]
  - HYPERSENSITIVITY [None]
  - HYPOVENTILATION [None]
  - INCORRECT DOSE ADMINISTERED [None]
  - INFLUENZA LIKE ILLNESS [None]
  - IRRITABILITY [None]
  - LACRIMATION INCREASED [None]
  - MALAISE [None]
  - MUSCLE TWITCHING [None]
  - MYASTHENIA GRAVIS [None]
  - NAUSEA [None]
  - RHINORRHOEA [None]
  - SALIVARY HYPERSECRETION [None]
  - SOMNOLENCE [None]
  - THERAPEUTIC RESPONSE UNEXPECTED WITH DRUG SUBSTITUTION [None]
  - VISION BLURRED [None]
